FAERS Safety Report 23623292 (Version 1)
Quarter: 2024Q1

REPORT INFORMATION
  Report Type: Spontaneous
  Country: FR (occurrence: FR)
  Receive Date: 20240312
  Receipt Date: 20240312
  Transmission Date: 20240410
  Serious: Yes (Other)
  Sender: FDA-Public Use
  Company Number: FR-GLAXOSMITHKLINE-FR2024EME031306

PATIENT

DRUGS (1)
  1. LAMOTRIGINE [Suspect]
     Active Substance: LAMOTRIGINE
     Indication: Product used for unknown indication
     Dosage: UNK
     Route: 063

REACTIONS (8)
  - Hepatic cytolysis [Unknown]
  - Apnoea [Unknown]
  - Transaminases increased [Unknown]
  - Somnolence [Unknown]
  - Selective eating disorder [Unknown]
  - Rash [Unknown]
  - Jaundice [Unknown]
  - Exposure via breast milk [Unknown]
